FAERS Safety Report 7681058-3 (Version None)
Quarter: 2011Q3

REPORT INFORMATION
  Report Type: 
  Country: None (occurrence: None)
  Receive Date: 20110812
  Receipt Date: 20110803
  Transmission Date: 20111222
  Serious: Yes (Other)
  Sender: FDA-Public Use
  Company Number: US-ASTRAZENECA-2011SE46987

PATIENT
  Age: 42 Year
  Sex: Female

DRUGS (2)
  1. SEROQUEL XR [Suspect]
     Indication: BIPOLAR DISORDER
     Dosage: 400 MG, TWO TIMES A DAY
     Route: 048
  2. SEROQUEL XR [Suspect]
     Indication: DEPRESSION
     Dosage: 400 MG, TWO TIMES A DAY
     Route: 048

REACTIONS (1)
  - MULTIPLE SCLEROSIS [None]
